FAERS Safety Report 6473284-6 (Version None)
Quarter: 2009Q4

REPORT INFORMATION
  Report Type: 
  Country: None (occurrence: None)
  Receive Date: 20091204
  Receipt Date: 20080828
  Transmission Date: 20100525
  Serious: Yes (Death, Other)
  Sender: FDA-Public Use
  Company Number: JP-ELI_LILLY_AND_COMPANY-JP200807005034

PATIENT
  Age: 64 Year
  Sex: Male
  Weight: 47 kg

DRUGS (6)
  1. GEMZAR [Suspect]
     Indication: LUNG ADENOCARCINOMA STAGE IV
     Dosage: 1400 MG, OTHER
     Route: 042
     Dates: start: 20080604, end: 20080611
  2. GEMZAR [Suspect]
     Dosage: 1400 MG, OTHER
     Route: 042
     Dates: start: 20080701, end: 20080708
  3. PARAPLATIN [Concomitant]
     Indication: LUNG ADENOCARCINOMA STAGE IV
     Dosage: 530 MG, OTHER
     Route: 042
     Dates: start: 20080604, end: 20080604
  4. PARAPLATIN [Concomitant]
     Dosage: 450 MG, OTHER
     Route: 042
     Dates: start: 20080701, end: 20080701
  5. DECADRON /00016002/ [Concomitant]
     Indication: PROPHYLAXIS
     Dosage: 12 MG, OTHER
     Route: 042
     Dates: start: 20080604, end: 20080708
  6. KYTRIL /01178102/ [Concomitant]
     Indication: PROPHYLAXIS
     Dosage: 3 MG, OTHER
     Route: 042
     Dates: start: 20080604, end: 20080708

REACTIONS (11)
  - ARTERITIS [None]
  - COUGH [None]
  - DISSEMINATED INTRAVASCULAR COAGULATION [None]
  - LOCAL SWELLING [None]
  - MALAISE [None]
  - MULTI-ORGAN FAILURE [None]
  - PLATELET COUNT DECREASED [None]
  - PNEUMONIA [None]
  - PYREXIA [None]
  - VASCULITIS [None]
  - WHITE BLOOD CELL COUNT DECREASED [None]
